FAERS Safety Report 24994656 (Version 2)
Quarter: 2025Q1

REPORT INFORMATION
  Report Type: Spontaneous
  Country: AU (occurrence: AU)
  Receive Date: 20250221
  Receipt Date: 20250319
  Transmission Date: 20250409
  Serious: Yes (Hospitalization)
  Sender: CIPLA
  Company Number: AU-CIPLA LTD.-2025AU02370

PATIENT

DRUGS (2)
  1. SIMVASTATIN [Suspect]
     Active Substance: SIMVASTATIN
     Indication: Type IIa hyperlipidaemia
     Dosage: 40 MILLIGRAM, BID (80 MG, 1 DAY)
     Route: 065
  2. PROBUCOL [Suspect]
     Active Substance: PROBUCOL
     Indication: Type IIa hyperlipidaemia
     Dosage: 500 MILLIGRAM, BID (1000 MG, 1 DAY)
     Route: 065

REACTIONS (2)
  - Drug ineffective [Unknown]
  - Drug intolerance [Unknown]
